FAERS Safety Report 13345012 (Version 3)
Quarter: 2022Q2

REPORT INFORMATION
  Report Type: Spontaneous
  Country: US (occurrence: US)
  Receive Date: 20170317
  Receipt Date: 20220519
  Transmission Date: 20220721
  Serious: No
  Sender: FDA-Public Use
  Company Number: US-PFIZER INC-2017112660

PATIENT
  Age: 82 Year
  Sex: Female

DRUGS (2)
  1. PREMARIN [Suspect]
     Active Substance: ESTROGENS, CONJUGATED
     Dosage: UNK
     Dates: start: 1972
  2. PREMARIN [Suspect]
     Active Substance: ESTROGENS, CONJUGATED
     Dosage: 1.25 MG
     Dates: start: 1973

REACTIONS (4)
  - Withdrawal syndrome [Unknown]
  - Tremor [Unknown]
  - Irritability [Unknown]
  - Off label use [Unknown]
